FAERS Safety Report 26076440 (Version 1)
Quarter: 2025Q4

REPORT INFORMATION
  Report Type: Spontaneous
  Country: CN (occurrence: CN)
  Receive Date: 20251121
  Receipt Date: 20251121
  Transmission Date: 20260117
  Serious: Yes (Other)
  Sender: PFIZER
  Company Number: CN-PFIZER INC-PV202500135120

PATIENT
  Age: 93 Year
  Sex: Male

DRUGS (1)
  1. TYGACIL [Suspect]
     Active Substance: TIGECYCLINE
     Indication: Symptomatic treatment
     Dosage: 50 MG, 2X/DAY
     Route: 041
     Dates: start: 20251016, end: 20251027

REACTIONS (1)
  - Blood albumin decreased [Unknown]

NARRATIVE: CASE EVENT DATE: 20251021
